FAERS Safety Report 21881777 (Version 1)
Quarter: 2023Q1

REPORT INFORMATION
  Report Type: Spontaneous
  Country: US (occurrence: US)
  Receive Date: 20230119
  Receipt Date: 20230119
  Transmission Date: 20230418
  Serious: Yes (Other)
  Sender: FDA-Public Use
  Company Number: US-BRISTOL-MYERS SQUIBB COMPANY-2023-007854

PATIENT
  Age: 60 Year
  Sex: Female

DRUGS (1)
  1. ORENCIA [Suspect]
     Active Substance: ABATACEPT
     Indication: Felty^s syndrome
     Dosage: 125MG/ML
     Route: 058
     Dates: start: 20220225

REACTIONS (5)
  - Hyponatraemia [Unknown]
  - Red blood cell count decreased [Unknown]
  - Blood magnesium decreased [Unknown]
  - Supraventricular tachycardia [Unknown]
  - Weight decreased [Unknown]

NARRATIVE: CASE EVENT DATE: 20221221
